FAERS Safety Report 18926895 (Version 1)
Quarter: 2021Q1

REPORT INFORMATION
  Report Type: Spontaneous
  Country: JP (occurrence: JP)
  Receive Date: 20210223
  Receipt Date: 20210223
  Transmission Date: 20210420
  Serious: Yes (Hospitalization, Other)
  Sender: FDA-Public Use
  Company Number: JP-BRISTOL-MYERS SQUIBB COMPANY-BMS-2021-017259

PATIENT
  Age: 72 Year
  Sex: Male
  Weight: 62.1 kg

DRUGS (2)
  1. OPDIVO [Suspect]
     Active Substance: NIVOLUMAB
     Dosage: UNK MILLIGRAM/KILOGRAM
     Route: 041
  2. OPDIVO [Suspect]
     Active Substance: NIVOLUMAB
     Indication: NON-SMALL CELL LUNG CANCER RECURRENT
     Dosage: 3 MG/KG
     Route: 041

REACTIONS (2)
  - Immune-mediated enterocolitis [Recovering/Resolving]
  - Immune-mediated cholangitis [Unknown]
